FAERS Safety Report 14026271 (Version 2)
Quarter: 2017Q4

REPORT INFORMATION
  Report Type: Spontaneous
  Country: GB (occurrence: GB)
  Receive Date: 20170929
  Receipt Date: 20171010
  Transmission Date: 20180321
  Serious: Yes (Hospitalization, Other)
  Sender: FDA-Public Use
  Company Number: GB-ASCEND THERAPEUTICS-2028291

PATIENT
  Age: 78 Year
  Sex: Female

DRUGS (28)
  1. CO-CODAMOL (CODEINE PHOSPHATE, PARACETAMOL) 30/500MG [Concomitant]
     Route: 065
  2. FOLIC ACID. [Concomitant]
     Active Substance: FOLIC ACID
     Route: 065
  3. IBUPROFEN. [Concomitant]
     Active Substance: IBUPROFEN
     Route: 065
  4. LIDOCAINE 5% [Concomitant]
     Active Substance: LIDOCAINE
     Route: 065
  5. ALFACALCIDOL (ALFACALCIDOL) [Concomitant]
     Active Substance: ALFACALCIDOL
     Route: 065
  6. ASPIRIN. [Concomitant]
     Active Substance: ASPIRIN
     Route: 065
  7. OMEPRAZOLE. [Concomitant]
     Active Substance: OMEPRAZOLE
     Route: 065
  8. VAGIFEM [Concomitant]
     Active Substance: ESTRADIOL
     Route: 067
  9. XYLOPROCT (HYDROCORTISONE ACETATE, LIDOCAINE) 5%/0.275% [Concomitant]
     Route: 065
  10. ACLIDINIUM BROMIDE (ACLIDINIUM BROMIDE) [Concomitant]
     Route: 055
  11. GABAPENTIN. [Concomitant]
     Active Substance: GABAPENTIN
     Route: 065
  12. LOPERAMIDE (LOPERAMIDE) [Concomitant]
     Active Substance: LOPERAMIDE
     Route: 065
  13. NITRAZEPAM (NITRAZEPAM) [Concomitant]
     Active Substance: NITRAZEPAM
     Route: 065
  14. VENTOLIN (SALBUTAMOL SULFATE) [Concomitant]
     Route: 055
  15. ESTROGEL [Suspect]
     Active Substance: ESTRADIOL
     Indication: PRODUCT USED FOR UNKNOWN INDICATION
     Route: 065
  16. DIPYRIDAMOLE. [Concomitant]
     Active Substance: DIPYRIDAMOLE
     Route: 065
  17. FUROSEMIDE. [Concomitant]
     Active Substance: FUROSEMIDE
     Route: 065
  18. LACRI-LUBE (WOOL FAT, PETROLATUM, MINERAL OIL LIGHT) [Concomitant]
     Route: 047
  19. LACTULOSE. [Concomitant]
     Active Substance: LACTULOSE
     Route: 065
  20. ALUMINIUM DIACETATE (ALUMINIUM DIACETATE) [Concomitant]
     Route: 065
  21. EPADERM (PETROLATUM, PARAFFIN, LIQUID, EMULSIFYING WAX) [Concomitant]
     Route: 065
  22. SIMVASTATIN. [Concomitant]
     Active Substance: SIMVASTATIN
     Route: 065
  23. COLESTYRAMINE (COLESTYRAMINE) [Concomitant]
     Route: 065
  24. DULOXETINE. [Concomitant]
     Active Substance: DULOXETINE
     Route: 065
  25. ZINC OXIDE. [Concomitant]
     Active Substance: ZINC OXIDE
     Route: 065
  26. ADCAL D3 (COLECALCIFEROL, CALCIUM CARBONATE) [Concomitant]
     Route: 065
  27. MEBEVERINE (MEBEVERINE) [Concomitant]
     Active Substance: MEBEVERINE
     Route: 065
  28. PREDNISOLONE. [Concomitant]
     Active Substance: PREDNISOLONE
     Route: 065

REACTIONS (1)
  - Pulmonary embolism [Unknown]
